FAERS Safety Report 4416721-0 (Version None)
Quarter: 2004Q3

REPORT INFORMATION
  Report Type: 
  Country: None (occurrence: None)
  Receive Date: 20040803
  Receipt Date: 20040723
  Transmission Date: 20050211
  Serious: Yes (Other)
  Sender: FDA-Public Use
  Company Number: A-CH2004-06783

PATIENT
  Age: 62 Year
  Sex: Female

DRUGS (9)
  1. TRACLEER [Suspect]
     Indication: PULMONARY HYPERTENSION
     Dosage: 62.5 MG, BID, ORAL; 125 MG, BID, ORAL
     Route: 048
     Dates: start: 20020523, end: 20020619
  2. TRACLEER [Suspect]
     Indication: PULMONARY HYPERTENSION
     Dosage: 62.5 MG, BID, ORAL; 125 MG, BID, ORAL
     Route: 048
     Dates: start: 20020620
  3. CORTICOSTEROID NOS (CORTICOSTEROID NOS) [Concomitant]
  4. PREVISCAN (FLUINDIONE) [Concomitant]
  5. ALDACTONE [Concomitant]
  6. FUROSEMIDE [Concomitant]
  7. DIGOXIN [Concomitant]
  8. RIVOTRIL (CLONAZEPAM) [Concomitant]
  9. SYMBICORT [Concomitant]

REACTIONS (7)
  - ANGIOPATHY [None]
  - ERYTHEMA [None]
  - SKIN ATROPHY [None]
  - SKIN ULCER [None]
  - VARICOSE VEIN [None]
  - VEIN PAIN [None]
  - VENOUS INSUFFICIENCY [None]
